FAERS Safety Report 15414252 (Version 2)
Quarter: 2018Q4

REPORT INFORMATION
  Report Type: Spontaneous
  Country: ES (occurrence: ES)
  Receive Date: 20180921
  Receipt Date: 20181012
  Transmission Date: 20190204
  Serious: Yes (Other)
  Sender: FDA-Public Use
  Company Number: ES-BRISTOL-MYERS SQUIBB COMPANY-BMS-2018-086257

PATIENT

DRUGS (2)
  1. BELATACEPT [Suspect]
     Active Substance: BELATACEPT
     Indication: ORGAN TRANSPLANT
     Dosage: 500 MG, QMO
     Route: 065
  2. SIROLIMUS. [Suspect]
     Active Substance: SIROLIMUS
     Indication: ORGAN TRANSPLANT
     Dosage: 1 MG, UNK
     Route: 065

REACTIONS (4)
  - Product use in unapproved indication [Unknown]
  - Aplastic anaemia [Recovered/Resolved]
  - Parvovirus B19 infection [Recovered/Resolved]
  - Transplant rejection [Recovering/Resolving]
